FAERS Safety Report 4556646-3 (Version None)
Quarter: 2005Q1

REPORT INFORMATION
  Report Type: 
  Country: None (occurrence: None)
  Receive Date: 20050114
  Receipt Date: 20050104
  Transmission Date: 20050727
  Serious: Yes (Other)
  Sender: FDA-Public Use
  Company Number: MK200501-0053-1

PATIENT
  Age: 34 Year
  Sex: Female

DRUGS (4)
  1. ANAFRANIL CAP [Suspect]
     Indication: ANXIETY
     Dosage: 10 MG, ONCE, PO
     Route: 048
  2. ANAFRANIL CAP [Suspect]
     Indication: DEPRESSION
     Dosage: 10 MG, ONCE, PO
     Route: 048
  3. DOXEPIN HCL [Concomitant]
  4. VENLAFAXINE HCL [Concomitant]

REACTIONS (5)
  - BLOOD PRESSURE DECREASED [None]
  - CIRCULATORY COLLAPSE [None]
  - HYPERHIDROSIS [None]
  - HYPERSENSITIVITY [None]
  - NAUSEA [None]
